FAERS Safety Report 19085501 (Version 1)
Quarter: 2021Q2

REPORT INFORMATION
  Report Type: Spontaneous
  Country: US (occurrence: US)
  Receive Date: 20210401
  Receipt Date: 20210401
  Transmission Date: 20210717
  Serious: No
  Sender: FDA-Public Use
  Company Number: US-IBSA PHARMA-2020-IBS-00675

PATIENT
  Age: 75 Year

DRUGS (2)
  1. DICLOFENAC [Suspect]
     Active Substance: DICLOFENAC
     Indication: BACK PAIN
     Dosage: UNK, 2X/DAY (TOPICAL SYSTEM EVERY 12 HOURS THE ADHESIVE IS DIFFERENT)
     Route: 061
  2. DICLOFENAC [Suspect]
     Active Substance: DICLOFENAC
     Dosage: UNK
     Route: 061
     Dates: start: 2020

REACTIONS (6)
  - Poor quality device used [Unknown]
  - Skin irritation [Unknown]
  - Allergic reaction to excipient [Unknown]
  - Drug ineffective [Unknown]
  - Device adhesion issue [Unknown]
  - Pruritus [Unknown]

NARRATIVE: CASE EVENT DATE: 2020
